FAERS Safety Report 5912372-7 (Version None)
Quarter: 2008Q4

REPORT INFORMATION
  Report Type: 
  Country: None (occurrence: None)
  Receive Date: 20081008
  Receipt Date: 20080929
  Transmission Date: 20090506
  Serious: Yes (Hospitalization)
  Sender: FDA-Public Use
  Company Number: US-KINGPHARMUSA00001-K200801160

PATIENT

DRUGS (15)
  1. AVINZA [Suspect]
     Dosage: 30 MG, QD
     Route: 048
     Dates: start: 20080909, end: 20080901
  2. AVINZA [Suspect]
     Dosage: 30 MG, QD
     Dates: start: 20081002
  3. PERCOCET [Suspect]
     Indication: PAIN
     Dosage: 1-2 UNITS Q 1-3 HOURS
     Route: 048
  4. BENADRYL [Suspect]
     Dates: start: 20080916
  5. COUMADIN [Concomitant]
  6. LASIX [Concomitant]
  7. NORVASC [Concomitant]
  8. DIOVAN                             /01319601/ [Concomitant]
  9. CYMBALTA [Concomitant]
  10. PROTONIX                           /01263201/ [Concomitant]
  11. ALBUTEROL [Concomitant]
  12. SYNTHROID [Concomitant]
  13. BACLOFEN [Concomitant]
  14. NEURONTIN [Concomitant]
  15. POTASSIUM CHLORIDE [Concomitant]

REACTIONS (4)
  - LETHARGY [None]
  - MENTAL DISORDER [None]
  - PNEUMONIA [None]
  - RENAL FAILURE [None]
